FAERS Safety Report 7246255-X (Version None)
Quarter: 2011Q1

REPORT INFORMATION
  Report Type: 
  Country: None (occurrence: None)
  Receive Date: 20110126
  Receipt Date: 20110120
  Transmission Date: 20110831
  Serious: Yes (Death)
  Sender: FDA-Public Use
  Company Number: US-JNJFOC-20110101086

PATIENT

DRUGS (2)
  1. ACETAMINOPHEN [Suspect]
     Route: 015
  2. ACETAMINOPHEN [Suspect]
     Indication: DRUG EXPOSURE DURING PREGNANCY
     Route: 015

REACTIONS (2)
  - INTRA-UTERINE DEATH [None]
  - HEPATIC NECROSIS [None]
